FAERS Safety Report 5015049-8 (Version None)
Quarter: 2006Q2

REPORT INFORMATION
  Report Type: 
  Country: None (occurrence: None)
  Receive Date: 20060414
  Receipt Date: 20060110
  Transmission Date: 20061013
  Serious: No
  Sender: FDA-Public Use
  Company Number: 2006SP000152

PATIENT
  Age: 92 Year
  Sex: Male
  Weight: 88.4514 kg

DRUGS (7)
  1. LUNESTA [Suspect]
     Indication: INSOMNIA
     Dosage: 2 MG;HS;ORAL
     Route: 048
     Dates: start: 20060109
  2. WARFARIN SODIUM [Concomitant]
  3. SONATA [Concomitant]
  4. METOPROLOL TARTRATE [Concomitant]
  5. AMLODIPINE [Concomitant]
  6. ZETIA [Concomitant]
  7. SINEMET [Concomitant]

REACTIONS (2)
  - DRUG INEFFECTIVE [None]
  - INSOMNIA [None]
